FAERS Safety Report 4510684-5 (Version None)
Quarter: 2004Q4

REPORT INFORMATION
  Report Type: 
  Country: None (occurrence: None)
  Receive Date: 20041123
  Receipt Date: 20041117
  Transmission Date: 20050328
  Serious: Yes (Other)
  Sender: FDA-Public Use
  Company Number: 04-11-1614

PATIENT
  Age: 50 Year
  Sex: Female

DRUGS (1)
  1. CLOZAPINE [Suspect]
     Dosage: 100-500MG QD ORAL
     Route: 048
     Dates: start: 20020801

REACTIONS (1)
  - WHITE BLOOD CELL COUNT DECREASED [None]
